FAERS Safety Report 17844662 (Version 2)
Quarter: 2020Q2

REPORT INFORMATION
  Report Type: Spontaneous
  Country: PE (occurrence: PE)
  Receive Date: 20200601
  Receipt Date: 20200610
  Transmission Date: 20200714
  Serious: Yes (Other)
  Sender: FDA-Public Use
  Company Number: PE-EMD SERONO-9165395

PATIENT
  Age: 10 Year
  Sex: Male

DRUGS (1)
  1. SAIZEN [Suspect]
     Active Substance: SOMATROPIN
     Indication: GROWTH HORMONE DEFICIENCY
     Dosage: DOSE: 1.33 MG/4UI?SAIZEN LIQUID 20MG (60UI)
     Route: 058
     Dates: start: 20191129, end: 20200510

REACTIONS (2)
  - Diabetes mellitus [Unknown]
  - Skin discolouration [Not Recovered/Not Resolved]

NARRATIVE: CASE EVENT DATE: 202005
